FAERS Safety Report 11890368 (Version 1)
Quarter: 2016Q1

REPORT INFORMATION
  Report Type: Spontaneous
  Country: CN (occurrence: CN)
  Receive Date: 20160105
  Receipt Date: 20160105
  Transmission Date: 20160526
  Serious: Yes (Other)
  Sender: FDA-Public Use
  Company Number: CN-MYLANLABS-2015M1047918

PATIENT

DRUGS (6)
  1. FOLINIC ACID [Concomitant]
     Active Substance: LEUCOVORIN
     Indication: ANGIOCENTRIC LYMPHOMA
     Route: 065
  2. METHOTREXATE [Suspect]
     Active Substance: METHOTREXATE
     Indication: ANGIOCENTRIC LYMPHOMA
     Dosage: 3.0 G/M2, OVER 24H; EVERY 3 WEEKS
     Route: 042
  3. DEXAMETHASONE. [Suspect]
     Active Substance: DEXAMETHASONE
     Indication: ANGIOCENTRIC LYMPHOMA
     Dosage: 40 MG, ON DAYS 2-4; EVERY 3 WKS
     Route: 042
  4. ETOPOSIDE. [Suspect]
     Active Substance: ETOPOSIDE
     Indication: ANGIOCENTRIC LYMPHOMA
     Dosage: 100 MG/M2, ON DAYS 2-4; EVERY 3 WKS
     Route: 042
  5. GRANULOCYTE MACROPHAGE COLONY STIM FACTOR [Concomitant]
     Active Substance: GRANULOCYTE-MACROPHAGE COLONY-STIMULATING FACTOR
     Indication: ANGIOCENTRIC LYMPHOMA
     Route: 065
  6. PEGASPARGASE [Suspect]
     Active Substance: PEGASPARGASE
     Indication: ANGIOCENTRIC LYMPHOMA
     Dosage: 2500 U/M2 ON DAY 4; EVERY 3 WKS
     Route: 042

REACTIONS (1)
  - Hepatotoxicity [Unknown]
